FAERS Safety Report 18163030 (Version 1)
Quarter: 2020Q3

REPORT INFORMATION
  Report Type: Spontaneous
  Country: US (occurrence: US)
  Receive Date: 20200818
  Receipt Date: 20200818
  Transmission Date: 20201103
  Serious: No
  Sender: FDA-Public Use
  Company Number: None

PATIENT
  Age: 39 Year
  Sex: Female
  Weight: 64.1 kg

DRUGS (1)
  1. GLATIRAMER 40MG [Suspect]
     Active Substance: GLATIRAMER
     Indication: MULTIPLE SCLEROSIS
     Dosage: ?          OTHER DOSE:GLATIRAMER ;OTHER FREQUENCY:3XW;OTHER ROUTE:40MG SUB Q?
     Dates: start: 2017, end: 2017

REACTIONS (4)
  - Injection site erythema [None]
  - Skin disorder [None]
  - Injection site pain [None]
  - Injection site swelling [None]
